FAERS Safety Report 8440909-5 (Version None)
Quarter: 2012Q2

REPORT INFORMATION
  Report Type: 
  Country: None (occurrence: None)
  Receive Date: 20120615
  Receipt Date: 20120606
  Transmission Date: 20120825
  Serious: Yes (Hospitalization)
  Sender: FDA-Public Use
  Company Number: US-BAYER-2012-042965

PATIENT
  Age: 49 Year
  Sex: Female
  Weight: 96.599 kg

DRUGS (10)
  1. CYMBALTA [Concomitant]
     Indication: MIGRAINE WITH AURA
  2. CYMBALTA [Concomitant]
     Indication: ATTENTION DEFICIT/HYPERACTIVITY DISORDER
     Route: 048
  3. STRATTERA [Concomitant]
     Dosage: UNK
     Route: 048
     Dates: start: 20041018, end: 20041212
  4. LEXAPRO [Concomitant]
     Dosage: UNK
     Dates: start: 20050113
  5. STRATTERA [Concomitant]
     Dosage: UNK
     Dates: start: 20041212
  6. LEVOXYL [Concomitant]
     Indication: HYPOTHYROIDISM
     Dosage: UNK
     Route: 048
     Dates: start: 20050217, end: 20050308
  7. LEXAPRO [Concomitant]
     Dosage: 10 MG, DAILY
     Route: 048
     Dates: start: 20041018, end: 20050113
  8. YASMIN [Suspect]
     Indication: ENDOMETRIAL DISORDER
     Dosage: UNK
     Dates: start: 20040422, end: 20050117
  9. VALIUM [Concomitant]
     Dosage: 10 MG, 1/2 TO 1 TABLET, EVERY NIGHT AS NEEDED AND DIRECTED
     Route: 048
  10. ASPIRIN [Concomitant]
     Dosage: UNK
     Route: 048
     Dates: start: 20050117

REACTIONS (9)
  - DEEP VEIN THROMBOSIS [None]
  - INJURY [None]
  - PAIN IN EXTREMITY [None]
  - COUGH [None]
  - OEDEMA PERIPHERAL [None]
  - PLEURITIC PAIN [None]
  - PAIN [None]
  - DYSPNOEA [None]
  - BACK PAIN [None]
